FAERS Safety Report 21933701 (Version 2)
Quarter: 2023Q1

REPORT INFORMATION
  Report Type: Report from Study
  Country: US (occurrence: US)
  Receive Date: 20230201
  Receipt Date: 20230207
  Transmission Date: 20230418
  Serious: Yes (Other)
  Sender: FDA-Public Use
  Company Number: US-MTPC-MTDA2023-0002388

PATIENT
  Sex: Female

DRUGS (4)
  1. RADICAVA [Suspect]
     Active Substance: EDARAVONE
     Indication: Amyotrophic lateral sclerosis
     Dosage: 5 MILLILITER, QD
     Route: 048
     Dates: start: 202211
  2. RADICAVA [Suspect]
     Active Substance: EDARAVONE
     Indication: Amyotrophic lateral sclerosis
     Dosage: 5 MILLILITER, QD
     Route: 048
     Dates: start: 202211
  3. RADICAVA [Suspect]
     Active Substance: EDARAVONE
     Dosage: UNK
     Route: 065
  4. RADICAVA [Suspect]
     Active Substance: EDARAVONE
     Dosage: UNK
     Route: 065

REACTIONS (4)
  - Cardiac flutter [Unknown]
  - Dyspnoea [Unknown]
  - Pruritus [Unknown]
  - Chronic obstructive pulmonary disease [Unknown]
